FAERS Safety Report 14328449 (Version 1)
Quarter: 2017Q4

REPORT INFORMATION
  Report Type: Spontaneous
  Country: US (occurrence: US)
  Receive Date: 20171227
  Receipt Date: 20171227
  Transmission Date: 20180321
  Serious: Yes (Hospitalization)
  Sender: FDA-Public Use
  Company Number: None

PATIENT
  Sex: Female

DRUGS (18)
  1. ASPIRIN. [Concomitant]
     Active Substance: ASPIRIN
  2. CARVEDILOL. [Concomitant]
     Active Substance: CARVEDILOL
  3. LEVEMIR [Concomitant]
     Active Substance: INSULIN DETEMIR
  4. LORAZEPAM. [Concomitant]
     Active Substance: LORAZEPAM
  5. ROPINIROLE. [Concomitant]
     Active Substance: ROPINIROLE
  6. GABAPENTIN. [Concomitant]
     Active Substance: GABAPENTIN
  7. METFORMIN [Concomitant]
     Active Substance: METFORMIN HYDROCHLORIDE
  8. LEVOTHYROXIN [Concomitant]
     Active Substance: LEVOTHYROXINE
  9. BENADRYL [Concomitant]
     Active Substance: DIPHENHYDRAMINE HYDROCHLORIDE
  10. LETROZOLE. [Concomitant]
     Active Substance: LETROZOLE
  11. METOCLOPRAM [Concomitant]
     Active Substance: METOCLOPRAMIDE
  12. POTASSIUM [Concomitant]
     Active Substance: POTASSIUM
  13. IBRANCE [Suspect]
     Active Substance: PALBOCICLIB
     Indication: BREAST CANCER FEMALE
     Route: 048
     Dates: start: 20170622
  14. CALCIUM [Concomitant]
     Active Substance: CALCIUM
  15. SINGULAIR [Concomitant]
     Active Substance: MONTELUKAST SODIUM
  16. IMODIUM A-D [Concomitant]
     Active Substance: LOPERAMIDE HYDROCHLORIDE
  17. MORPHINE [Concomitant]
     Active Substance: MORPHINE
  18. ONDANSETRON [Concomitant]
     Active Substance: ONDANSETRON

REACTIONS (2)
  - Clostridium difficile infection [None]
  - White blood cell count decreased [None]
